FAERS Safety Report 7504256-8 (Version None)
Quarter: 2011Q2

REPORT INFORMATION
  Report Type: 
  Country: None (occurrence: None)
  Receive Date: 20110401
  Receipt Date: 20110110
  Transmission Date: 20111010
  Serious: No
  Sender: FDA-Public Use
  Company Number: US-004502

PATIENT
  Age: 63 Year
  Sex: Male

DRUGS (3)
  1. FIRMAGON [Suspect]
     Indication: PROSTATE CANCER METASTATIC
     Dosage: 240 MG SUBCUTANEOUS
     Route: 058
     Dates: start: 20110110
  2. PRILOSEC [Concomitant]
  3. ATENOLOL [Concomitant]

REACTIONS (2)
  - LIMB DISCOMFORT [None]
  - DRUG ADMINISTERED AT INAPPROPRIATE SITE [None]
